FAERS Safety Report 9432423 (Version 1)
Quarter: 2013Q3

REPORT INFORMATION
  Report Type: Spontaneous
  Country: DE (occurrence: DE)
  Receive Date: 20130731
  Receipt Date: 20130731
  Transmission Date: 20140515
  Serious: Yes (Other)
  Sender: FDA-Public Use
  Company Number: DE-ABBOTT-13X-062-1125437-00

PATIENT
  Age: 4 Month
  Sex: 0

DRUGS (2)
  1. CLARITHROMYCIN [Suspect]
     Indication: MATERNAL EXPOSURE TIMING UNSPECIFIED
     Route: 063
  2. AMOXICILLIN [Suspect]
     Indication: MATERNAL EXPOSURE TIMING UNSPECIFIED
     Route: 063

REACTIONS (2)
  - Rash [Unknown]
  - Exposure during breast feeding [Unknown]
